FAERS Safety Report 4351712-X (Version None)
Quarter: 2004Q2

REPORT INFORMATION
  Report Type: 
  Country: None (occurrence: None)
  Receive Date: 20040427
  Receipt Date: 20040415
  Transmission Date: 20050107
  Serious: Yes (Life-Threatening, Other)
  Sender: FDA-Public Use
  Company Number: 2004025587

PATIENT
  Age: 72 Year
  Sex: Male

DRUGS (7)
  1. ATARAX [Suspect]
     Indication: ANXIETY
     Dosage: 25 MG (ONCE), INTRAMUSCULAR
     Route: 030
     Dates: start: 20040411, end: 20040411
  2. DIGOXIN [Concomitant]
  3. MEXILETINE HYDROCHLORIDE (MEXILETINE HYDROCHLORIDE) [Concomitant]
  4. FAMOTIDINE [Concomitant]
  5. TORSEMIDE [Concomitant]
  6. ASPARTATE POTASSIUM (ASPARTATE POTASSIUM) [Concomitant]
  7. FUROSEMIDE [Concomitant]

REACTIONS (3)
  - DYSPNOEA [None]
  - HYPOGLYCAEMIA [None]
  - LOSS OF CONSCIOUSNESS [None]
